FAERS Safety Report 11906489 (Version 1)
Quarter: 2016Q1

REPORT INFORMATION
  Report Type: Spontaneous
  Country: US (occurrence: None)
  Receive Date: 20160108
  Receipt Date: 20160108
  Transmission Date: 20160526
  Serious: Yes (Life-Threatening, Hospitalization, Disabling)
  Sender: FDA-Public Use
  Company Number: None

PATIENT
  Age: 64 Year
  Sex: Male
  Weight: 72.58 kg

DRUGS (5)
  1. METOPROLOL. [Concomitant]
     Active Substance: METOPROLOL
  2. ATORVASTATIN [Concomitant]
     Active Substance: ATORVASTATIN
  3. NIFEDIPINE. [Concomitant]
     Active Substance: NIFEDIPINE
  4. HYDROCHLOTHIAZIDE [Concomitant]
     Active Substance: HYDROCHLOROTHIAZIDE
  5. VIOXX [Suspect]
     Active Substance: ROFECOXIB
     Indication: BACK PAIN
     Route: 048
     Dates: start: 20110124, end: 20111124

REACTIONS (3)
  - Cerebrovascular accident [None]
  - Drug administration error [None]
  - Tooth loss [None]

NARRATIVE: CASE EVENT DATE: 20110124
